FAERS Safety Report 8524371-X (Version None)
Quarter: 2012Q2

REPORT INFORMATION
  Report Type: 
  Country: None (occurrence: None)
  Receive Date: 20120406
  Receipt Date: 20110616
  Transmission Date: 20120825
  Serious: Yes (Hospitalization, Other)
  Sender: FDA-Public Use
  Company Number: US-2011-10418

PATIENT
  Age: 8 Month

DRUGS (5)
  1. GLOBULIN (IMMUNOGLOBULIN) [Concomitant]
  2. BUSULFEX [Suspect]
     Indication: STEM CELL TRANSPLANT
     Dosage: 0.8 MG/KG, Q6HR, INTRAVENOUS
     Route: 042
  3. CYCLOSPORINE [Concomitant]
  4. METHOTREXATE [Concomitant]
  5. CYCLOPHOSPHAMIDE [Suspect]
     Indication: STEM CELL TRANSPLANT
     Dosage: 50 MG/KG, DAILY DOSE, INTRAVENOUS
     Route: 042

REACTIONS (3)
  - BACTERAEMIA [None]
  - MUCOSAL INFLAMMATION [None]
  - PNEUMONIA [None]
